FAERS Safety Report 4971948-4 (Version None)
Quarter: 2006Q2

REPORT INFORMATION
  Report Type: 
  Country: None (occurrence: None)
  Receive Date: 20060413
  Receipt Date: 20051207
  Transmission Date: 20061013
  Serious: Yes (Hospitalization, Disabling, Other)
  Sender: FDA-Public Use
  Company Number: US-MERCK-0512USA01444

PATIENT
  Age: 47 Year
  Sex: Male
  Weight: 80 kg

DRUGS (10)
  1. VIOXX [Suspect]
     Indication: ARTHRALGIA
     Route: 048
     Dates: start: 20000601, end: 20010826
  2. ASPIRIN [Concomitant]
     Route: 048
  3. ASCORBIC ACID [Concomitant]
     Route: 048
  4. CYANOCOBALAMIN [Concomitant]
     Route: 048
  5. VITAMIN E [Concomitant]
     Route: 065
  6. ATENOLOL [Concomitant]
     Route: 048
  7. COAL TAR [Concomitant]
     Route: 065
  8. ELIDEL [Concomitant]
     Route: 065
  9. ELOCON [Concomitant]
     Route: 065
  10. FOLIC ACID [Concomitant]
     Route: 048

REACTIONS (3)
  - CARDIAC DISORDER [None]
  - CIRCULATORY COLLAPSE [None]
  - MYOCARDIAL INFARCTION [None]
